FAERS Safety Report 4436162-X (Version None)
Quarter: 2004Q3

REPORT INFORMATION
  Report Type: 
  Country: None (occurrence: None)
  Receive Date: 20040830
  Receipt Date: 20040412
  Transmission Date: 20050211
  Serious: No
  Sender: FDA-Public Use
  Company Number: US-BRISTOL-MYERS SQUIBB COMPANY-12557450

PATIENT
  Age: 74 Year
  Sex: Female
  Weight: 77 kg

DRUGS (6)
  1. ERBITUX [Suspect]
     Indication: COLON CANCER
     Dosage: INFUSION INTERRUPTED AND TO BE RESTARTED WITHIN ONE HOUR.
     Route: 042
     Dates: start: 20040412, end: 20040412
  2. BENADRYL [Concomitant]
     Indication: PREMEDICATION
     Dates: start: 20040412, end: 20040412
  3. ATROPINE [Concomitant]
  4. CAMPTOSAR [Concomitant]
  5. DECADRON [Concomitant]
  6. KYTRIL [Concomitant]

REACTIONS (2)
  - RASH PRURITIC [None]
  - RESTLESSNESS [None]
